FAERS Safety Report 8266193-3 (Version None)
Quarter: 2012Q2

REPORT INFORMATION
  Report Type: 
  Country: None (occurrence: None)
  Receive Date: 20120406
  Receipt Date: 20120403
  Transmission Date: 20120825
  Serious: Yes (Other)
  Sender: FDA-Public Use
  Company Number: US-PFIZER INC-2012084656

PATIENT
  Sex: Male
  Weight: 92.971 kg

DRUGS (3)
  1. VIAGRA [Suspect]
     Indication: ERECTILE DYSFUNCTION
     Route: 048
  2. TOPROL-XL [Concomitant]
     Dosage: UNK
  3. COUMADIN [Concomitant]
     Dosage: UNK

REACTIONS (4)
  - VISUAL IMPAIRMENT [None]
  - FEELING ABNORMAL [None]
  - HALLUCINATION, VISUAL [None]
  - FEAR [None]
